FAERS Safety Report 15107442 (Version 4)
Quarter: 2018Q3

REPORT INFORMATION
  Report Type: Report from Study
  Country: US (occurrence: US)
  Receive Date: 20180704
  Receipt Date: 20180821
  Transmission Date: 20181010
  Serious: Yes (Other)
  Sender: FDA-Public Use
  Company Number: US-GILEAD-2018-0348350

PATIENT
  Age: 82 Year
  Sex: Female

DRUGS (3)
  1. WARFARIN [Concomitant]
     Active Substance: WARFARIN
  2. AMBRISENTAN [Suspect]
     Active Substance: AMBRISENTAN
     Indication: PRODUCT USED FOR UNKNOWN INDICATION
     Dosage: 10 MG, QD
     Route: 065
     Dates: start: 20180313
  3. SILDENAFIL CITRATE. [Concomitant]
     Active Substance: SILDENAFIL CITRATE

REACTIONS (13)
  - Lung disorder [Not Recovered/Not Resolved]
  - Headache [Not Recovered/Not Resolved]
  - Macular degeneration [Not Recovered/Not Resolved]
  - Oedema peripheral [Unknown]
  - Intentional product use issue [Unknown]
  - Hallucination [Unknown]
  - Eye disorder [Not Recovered/Not Resolved]
  - Atrial fibrillation [Unknown]
  - Malaise [Not Recovered/Not Resolved]
  - International normalised ratio increased [Not Recovered/Not Resolved]
  - Cardiac disorder [Not Recovered/Not Resolved]
  - Dizziness postural [Not Recovered/Not Resolved]
  - Fluid retention [Not Recovered/Not Resolved]
